FAERS Safety Report 23495474 (Version 1)
Quarter: 2024Q1

REPORT INFORMATION
  Report Type: Spontaneous
  Country: FR (occurrence: FR)
  Receive Date: 20240207
  Receipt Date: 20240207
  Transmission Date: 20240410
  Serious: Yes (Hospitalization)
  Sender: FDA-Public Use
  Company Number: None

PATIENT
  Age: 16 Year
  Sex: Female

DRUGS (6)
  1. SERTRALINE HYDROCHLORIDE [Suspect]
     Active Substance: SERTRALINE HYDROCHLORIDE
     Indication: Poisoning deliberate
     Dosage: TIME INTERVAL: 1 TOTAL
     Route: 065
     Dates: start: 20231116, end: 20231116
  2. SERTRALINE HYDROCHLORIDE [Suspect]
     Active Substance: SERTRALINE HYDROCHLORIDE
     Indication: Poisoning deliberate
     Dosage: TIME INTERVAL: 1 TOTAL
     Route: 065
     Dates: start: 20231115, end: 20231115
  3. DOLIPRANE [Suspect]
     Active Substance: ACETAMINOPHEN
     Indication: Poisoning deliberate
     Dosage: TIME INTERVAL: 1 TOTAL: 500 MG, CAPSULE
     Route: 065
     Dates: start: 20231116, end: 20231116
  4. IBUPROFEN [Suspect]
     Active Substance: IBUPROFEN
     Indication: Poisoning deliberate
     Dosage: TIME INTERVAL: 1 TOTAL: 2 PADS
     Route: 065
     Dates: start: 20231116, end: 20231116
  5. IBUPROFEN [Suspect]
     Active Substance: IBUPROFEN
     Indication: Poisoning deliberate
     Dosage: TIME INTERVAL: 1 TOTAL: 6 TABS AT 400 MG
     Route: 065
     Dates: start: 20231115, end: 20231115
  6. DOLIPRANE [Suspect]
     Active Substance: ACETAMINOPHEN
     Indication: Poisoning deliberate
     Dosage: TIME INTERVAL: 1 TOTAL: 1000 MG, CAPSULE?MEDICAL BACKGROUND :?-DEPRESSIVE SYNDROME TREATED WITH S...
     Route: 065
     Dates: start: 20231116, end: 20231116

REACTIONS (7)
  - Chest pain [Recovered/Resolved]
  - Headache [Recovered/Resolved]
  - Toxicity to various agents [Recovered/Resolved]
  - Vomiting [Recovered/Resolved]
  - Syncope [Recovered/Resolved]
  - Abdominal pain [Recovered/Resolved]
  - Somnolence [Recovered/Resolved]

NARRATIVE: CASE EVENT DATE: 20231116
